FAERS Safety Report 11292700 (Version 1)
Quarter: 2015Q3

REPORT INFORMATION
  Report Type: Spontaneous
  Country: US (occurrence: None)
  Receive Date: 20150721
  Receipt Date: 20150721
  Transmission Date: 20151125
  Serious: No
  Sender: FDA-Public Use
  Company Number: None

PATIENT
  Age: 80 Year
  Sex: Female

DRUGS (1)
  1. BENAZEPRIL [Suspect]
     Active Substance: BENAZEPRIL HYDROCHLORIDE
     Indication: HYPERTENSION
     Route: 048
     Dates: start: 20081216, end: 20100330

REACTIONS (4)
  - Dyspnoea [None]
  - Unevaluable event [None]
  - Feeling hot [None]
  - Eye swelling [None]

NARRATIVE: CASE EVENT DATE: 20100330
